FAERS Safety Report 11499269 (Version 2)
Quarter: 2015Q4

REPORT INFORMATION
  Report Type: Spontaneous
  Country: GB (occurrence: GB)
  Receive Date: 20150913
  Receipt Date: 20151203
  Transmission Date: 20160304
  Serious: Yes (Hospitalization)
  Sender: FDA-Public Use
  Company Number: GB-AMGEN-GBRSP2015092713

PATIENT
  Age: 52 Year
  Sex: Female

DRUGS (3)
  1. NEULASTA [Suspect]
     Active Substance: PEGFILGRASTIM
     Indication: PRODUCT USED FOR UNKNOWN INDICATION
     Dosage: UNK
     Route: 065
  2. GEMCITABINE [Concomitant]
     Active Substance: GEMCITABINE\GEMCITABINE HYDROCHLORIDE
     Dosage: UNK
  3. ABRAXANE [Concomitant]
     Active Substance: PACLITAXEL
     Dosage: UNK

REACTIONS (6)
  - Platelet count decreased [Unknown]
  - Malaise [Unknown]
  - Body temperature increased [Recovered/Resolved]
  - Back pain [Unknown]
  - Oropharyngeal pain [Unknown]
  - Fatigue [Unknown]
